FAERS Safety Report 13008986 (Version 3)
Quarter: 2020Q1

REPORT INFORMATION
  Report Type: Spontaneous
  Country: US (occurrence: US)
  Receive Date: 20161208
  Receipt Date: 20200324
  Transmission Date: 20200409
  Serious: Yes (Death, Other)
  Sender: FDA-Public Use
  Company Number: US-PFIZER INC-2016567520

PATIENT
  Age: 78 Year
  Sex: Male
  Weight: 76 kg

DRUGS (1)
  1. REVATIO [Suspect]
     Active Substance: SILDENAFIL CITRATE
     Dosage: 20 MG, 3X/DAY
     Route: 048

REACTIONS (4)
  - Cognitive disorder [Unknown]
  - Rhinorrhoea [Unknown]
  - Asthenia [Unknown]
  - Death [Fatal]

NARRATIVE: CASE EVENT DATE: 20180105
